FAERS Safety Report 7560327-1 (Version None)
Quarter: 2011Q2

REPORT INFORMATION
  Report Type: 
  Country: None (occurrence: None)
  Receive Date: 20110621
  Receipt Date: 20110613
  Transmission Date: 20111010
  Serious: Yes (Hospitalization)
  Sender: FDA-Public Use
  Company Number: IT-TEVA-286926ISR

PATIENT
  Age: 40 Year
  Sex: Male

DRUGS (9)
  1. HYPERICUM PERFORATUM [Suspect]
  2. IODO-CASEIN [Suspect]
  3. BENFLUOREX [Suspect]
  4. METFORMIN HCL [Suspect]
  5. DEANOL ACETAMIDOBENZOATE [Suspect]
  6. HOODIA [Suspect]
  7. POTASSIUM CHLORIDE [Suspect]
  8. TRIAC [Suspect]
  9. FUROSEMIDE [Suspect]

REACTIONS (1)
  - HEPATITIS ACUTE [None]
